FAERS Safety Report 8384417-9 (Version None)
Quarter: 2012Q2

REPORT INFORMATION
  Report Type: 
  Country: None (occurrence: None)
  Receive Date: 20120524
  Receipt Date: 20120521
  Transmission Date: 20120825
  Serious: Yes (Other)
  Sender: FDA-Public Use
  Company Number: US-GLAXOSMITHKLINE-A0935773A

PATIENT
  Age: 45 Year
  Sex: Male
  Weight: 111.8 kg

DRUGS (5)
  1. NORVASC [Concomitant]
  2. BENICAR [Concomitant]
  3. AVANDAMET [Suspect]
     Indication: DIABETES MELLITUS
     Route: 048
     Dates: start: 20040524, end: 20050211
  4. AVANDIA [Suspect]
     Indication: DIABETES MELLITUS
     Dosage: 4MG TWICE PER DAY
     Route: 048
     Dates: start: 20040501
  5. AMARYL [Concomitant]

REACTIONS (1)
  - SILENT MYOCARDIAL INFARCTION [None]
